FAERS Safety Report 10025897 (Version 1)
Quarter: 2014Q1

REPORT INFORMATION
  Report Type: Spontaneous
  Country: ES (occurrence: None)
  Receive Date: 20140314
  Receipt Date: 20140314
  Transmission Date: 20141002
  Serious: Yes (Hospitalization)
  Sender: FDA-Public Use
  Company Number: AUR-APL-2014-02542

PATIENT
  Age: 79 Year
  Sex: Female

DRUGS (14)
  1. CEFUROXIME [Suspect]
     Indication: LARYNGITIS
     Route: 048
     Dates: start: 20130327, end: 20130408
  2. BALZAK [Suspect]
     Indication: LARYNGITIS
     Route: 048
     Dates: start: 201203, end: 20130415
  3. GENAMICIN [Suspect]
     Indication: SKIN ULCER
     Route: 048
     Dates: start: 20130406, end: 20130412
  4. NAPROXEN (NAPROXEN) [Suspect]
     Indication: PAIN
     Route: 048
     Dates: start: 20130408, end: 20130415
  5. SIMVASTAIN (SIMVASTATIN) [Concomitant]
  6. OMEPRAZOLE (OMEPRAZOLE) [Concomitant]
  7. NITRENDIPINE (NITRENDIPINE) [Concomitant]
  8. ACETAMINOPHEN (PARACETAMOL) [Concomitant]
  9. FOLI DOCE (FOLGAMMA) [Concomitant]
  10. LORAZEPAM (LORAZEPAM) [Concomitant]
  11. SERETIDE (SERETIDE) [Concomitant]
  12. ATROVENT (IPRATROPIUM BROMIDE) [Concomitant]
  13. FERO GRADUMET (FERROUS SULFATE) [Concomitant]
  14. LEVOTHROID (LEVOTHYROXINE SODIUM) [Concomitant]

REACTIONS (8)
  - Renal failure acute [None]
  - Skin ulcer [None]
  - Laryngitis [None]
  - Oedema peripheral [None]
  - Hyperkalaemia [None]
  - Dyspnoea [None]
  - Pseudomonas test positive [None]
  - Drug interaction [None]
